FAERS Safety Report 12355817 (Version 1)
Quarter: 2016Q2

REPORT INFORMATION
  Report Type: Spontaneous
  Country: US (occurrence: US)
  Receive Date: 20160511
  Receipt Date: 20160511
  Transmission Date: 20160815
  Serious: Yes (Other)
  Sender: FDA-Public Use
  Company Number: US-BAUSCH-BL-2016-011062

PATIENT
  Age: 63 Year
  Sex: Male

DRUGS (3)
  1. BRIMONIDINE [Suspect]
     Active Substance: BRIMONIDINE TARTRATE
     Indication: EXFOLIATION GLAUCOMA
     Route: 065
  2. DORZOLAMIDE-TIMOLOL [Suspect]
     Active Substance: DORZOLAMIDE\TIMOLOL
     Indication: EXFOLIATION GLAUCOMA
     Route: 065
  3. BIMATOPROST. [Suspect]
     Active Substance: BIMATOPROST
     Indication: EXFOLIATION GLAUCOMA
     Route: 065

REACTIONS (5)
  - Corneal oedema [Not Recovered/Not Resolved]
  - Visual acuity tests abnormal [Recovering/Resolving]
  - Intraocular pressure increased [Unknown]
  - Vision blurred [Unknown]
  - Headache [Unknown]
